FAERS Safety Report 22083580 (Version 2)
Quarter: 2023Q2

REPORT INFORMATION
  Report Type: Spontaneous
  Country: US (occurrence: US)
  Receive Date: 20230310
  Receipt Date: 20230529
  Transmission Date: 20230721
  Serious: No
  Sender: FDA-Public Use
  Company Number: US-BRISTOL-MYERS SQUIBB COMPANY-2023-033937

PATIENT
  Age: 66 Year
  Sex: Female
  Weight: 140.16 kg

DRUGS (2)
  1. LENALIDOMIDE [Suspect]
     Active Substance: LENALIDOMIDE
     Indication: Plasma cell myeloma
     Dosage: FREQ: D1-21 Q 28 DAYS
     Route: 048
     Dates: start: 20170227
  2. LENALIDOMIDE [Suspect]
     Active Substance: LENALIDOMIDE
     Dosage: FREQ: D1-21 Q 28 DAYS
     Route: 048
     Dates: start: 20220929

REACTIONS (5)
  - Nasopharyngitis [Unknown]
  - Blood potassium decreased [Recovering/Resolving]
  - Ligament sprain [Recovering/Resolving]
  - Abdominal pain [Recovering/Resolving]
  - Gait disturbance [Recovering/Resolving]

NARRATIVE: CASE EVENT DATE: 20230507
